FAERS Safety Report 10542444 (Version 1)
Quarter: 2014Q4

REPORT INFORMATION
  Report Type: Spontaneous
  Country: GB (occurrence: GB)
  Receive Date: 20141027
  Receipt Date: 20141027
  Transmission Date: 20150529
  Serious: Yes (Other)
  Sender: FDA-Public Use
  Company Number: GB-AUROBINDO-AUR-APL-2014-10988

PATIENT
  Age: 51 Year
  Sex: Female
  Weight: 95.3 kg

DRUGS (2)
  1. CHAMPIX [Suspect]
     Active Substance: VARENICLINE TARTRATE
     Indication: SMOKING CESSATION THERAPY
     Dosage: UNK
     Route: 065
     Dates: start: 20140407, end: 20140630
  2. PAROXETINE 20MG (PAROXETINE) UNKNOWN, 20MG [Suspect]
     Active Substance: PAROXETINE\PAROXETINE HYDROCHLORIDE
     Indication: DEPRESSION
     Dosage: 20 MG, TWO TIMES A DAY
     Route: 065
     Dates: start: 200411, end: 201407

REACTIONS (7)
  - Depression [Recovering/Resolving]
  - Restlessness [Recovering/Resolving]
  - Crying [Recovering/Resolving]
  - Fatigue [Unknown]
  - Agitation [Recovering/Resolving]
  - Abnormal dreams [Recovering/Resolving]
  - Withdrawal syndrome [Recovering/Resolving]
